FAERS Safety Report 5969059-4 (Version None)
Quarter: 2008Q4

REPORT INFORMATION
  Report Type: 
  Country: None (occurrence: None)
  Receive Date: 20081125
  Receipt Date: 20081125
  Transmission Date: 20090506
  Serious: Yes (Hospitalization)
  Sender: FDA-Public Use
  Company Number: None

PATIENT
  Sex: Female
  Weight: 132.73 kg

DRUGS (3)
  1. CARBOPLATIN [Suspect]
     Dosage: 540 MG
  2. TAXOL [Suspect]
     Dosage: 270 MG
  3. ZOFRAN [Concomitant]

REACTIONS (5)
  - CONSTIPATION [None]
  - DEEP VEIN THROMBOSIS [None]
  - NAUSEA [None]
  - PULMONARY EMBOLISM [None]
  - VOMITING [None]
